FAERS Safety Report 6399240-4 (Version None)
Quarter: 2009Q4

REPORT INFORMATION
  Report Type: 
  Country: None (occurrence: None)
  Receive Date: 20091014
  Receipt Date: 20091002
  Transmission Date: 20100525
  Serious: Yes (Other)
  Sender: FDA-Public Use
  Company Number: GB-RANBAXY-2009RR-28397

PATIENT

DRUGS (1)
  1. ECCOXOLAC 300MG CAPSULES [Suspect]
     Indication: ARTHRALGIA

REACTIONS (5)
  - EYE SWELLING [None]
  - LIP SWELLING [None]
  - RASH [None]
  - SWELLING [None]
  - SWOLLEN TONGUE [None]
